FAERS Safety Report 4720702-7 (Version None)
Quarter: 2005Q3

REPORT INFORMATION
  Report Type: 
  Country: None (occurrence: None)
  Receive Date: 20050719
  Receipt Date: 20050706
  Transmission Date: 20060218
  Serious: Yes (Hospitalization)
  Sender: FDA-Public Use
  Company Number: US_0411107753

PATIENT
  Age: 39 Year
  Sex: Female
  Weight: 97 kg

DRUGS (9)
  1. ZYPREXA [Suspect]
     Indication: ANXIETY
     Dosage: 15 MG DAY
     Dates: start: 19970101, end: 20031120
  2. WELLBUTRIN [Concomitant]
  3. REMERON (MIRTAZAPINE ORIFARM) [Concomitant]
  4. ABILIFY [Concomitant]
  5. REGULAR INSULIN (INSULIN /00030501/) [Concomitant]
  6. ACTOS [Concomitant]
  7. HUMULIN 30/70 (INSULIN HUMAN INJECTION, ISOPHANE) [Concomitant]
  8. BUSPAR [Concomitant]
  9. PREMARIN /00073001/ (ESTROGENS CONJUGATED) [Concomitant]

REACTIONS (16)
  - ATELECTASIS [None]
  - BLOOD BILIRUBIN INCREASED [None]
  - BLOOD CHOLESTEROL ABNORMAL [None]
  - BLOOD PRESSURE INCREASED [None]
  - BLOOD TRIGLYCERIDES INCREASED [None]
  - COLONIC POLYP [None]
  - COMPUTERISED TOMOGRAM ABNORMAL [None]
  - DIABETES MELLITUS NON-INSULIN-DEPENDENT [None]
  - DIABETIC KETOACIDOSIS [None]
  - GASTROINTESTINAL DISORDER [None]
  - HAEMORRHAGE [None]
  - INJURY [None]
  - NAIL INFECTION [None]
  - NAUSEA [None]
  - PAIN [None]
  - PANCREATITIS [None]
